FAERS Safety Report 16012300 (Version 1)
Quarter: 2019Q1

REPORT INFORMATION
  Report Type: Spontaneous
  Country: US (occurrence: US)
  Receive Date: 20190227
  Receipt Date: 20190227
  Transmission Date: 20190418
  Serious: No
  Sender: FDA-Public Use
  Company Number: US-TEVA-2019-US-1008338

PATIENT
  Sex: Female

DRUGS (1)
  1. TOLTERODINE TARTRATE TEVA [Suspect]
     Active Substance: TOLTERODINE TARTRATE
     Route: 065

REACTIONS (2)
  - Drug effect incomplete [Unknown]
  - Product dosage form issue [None]
